FAERS Safety Report 10072574 (Version 1)
Quarter: 2014Q2

REPORT INFORMATION
  Report Type: Spontaneous
  Country: US (occurrence: US)
  Receive Date: 20140411
  Receipt Date: 20140411
  Transmission Date: 20141212
  Serious: Yes (Other)
  Sender: FDA-Public Use
  Company Number: US-009507513-1404USA005463

PATIENT
  Sex: Female

DRUGS (4)
  1. MIRALAX [Suspect]
     Indication: CONSTIPATION
     Dosage: UNK, UNKNOWN
     Route: 048
  2. OXYCONTIN [Suspect]
     Indication: BACK PAIN
     Dosage: UNK, UNKNOWN
     Route: 065
  3. OPANA [Suspect]
     Indication: BREAKTHROUGH PAIN
     Dosage: UNK, UNKNOWN
     Route: 065
  4. NORCO [Suspect]
     Indication: BREAKTHROUGH PAIN
     Dosage: UNK, UNKNOWN
     Route: 065

REACTIONS (4)
  - Surgery [Unknown]
  - Abdominal pain upper [Unknown]
  - Nausea [Unknown]
  - Muscle spasms [Unknown]
